FAERS Safety Report 10056184 (Version 35)
Quarter: 2020Q4

REPORT INFORMATION
  Report Type: Other
  Country: CA (occurrence: CA)
  Receive Date: 20140403
  Receipt Date: 20201208
  Transmission Date: 20210113
  Serious: Yes (Hospitalization, Other)
  Sender: FDA-Public Use
  Company Number: CA-ROCHE-1283628

PATIENT
  Age: 79 Year
  Sex: Female
  Weight: 46 kg

DRUGS (12)
  1. ACTEMRA [Suspect]
     Active Substance: TOCILIZUMAB
     Route: 042
     Dates: start: 20140114
  2. ACTEMRA [Suspect]
     Active Substance: TOCILIZUMAB
     Indication: RHEUMATOID ARTHRITIS
     Route: 042
     Dates: start: 20130828, end: 20190611
  3. ACTEMRA [Suspect]
     Active Substance: TOCILIZUMAB
     Indication: RHEUMATOID ARTHRITIS
     Route: 065
     Dates: start: 20130828, end: 20190611
  4. SULINDAC. [Concomitant]
     Active Substance: SULINDAC
     Indication: PRODUCT USED FOR UNKNOWN INDICATION
  5. CALCIUM [Concomitant]
     Active Substance: CALCIUM
     Indication: PRODUCT USED FOR UNKNOWN INDICATION
  6. ACTEMRA [Suspect]
     Active Substance: TOCILIZUMAB
     Dosage: NO PIRS RECEIVED BETWEEN 28-DEC-2016 TO 17-OCT- 2018, DOSAGE REMAINED THE SAME PER ENROLMENT PRESCRI
     Route: 042
     Dates: start: 20160127, end: 20190207
  7. ACTEMRA [Suspect]
     Active Substance: TOCILIZUMAB
     Route: 042
     Dates: start: 20130828, end: 20151230
  8. ACTEMRA [Suspect]
     Active Substance: TOCILIZUMAB
     Route: 042
     Dates: start: 20200212
  9. IMURAN [Concomitant]
     Active Substance: AZATHIOPRINE
  10. ACTEMRA [Suspect]
     Active Substance: TOCILIZUMAB
     Route: 042
     Dates: start: 20200626
  11. ACTEMRA [Suspect]
     Active Substance: TOCILIZUMAB
     Route: 042
     Dates: start: 20200311, end: 20200311
  12. ACTEMRA [Suspect]
     Active Substance: TOCILIZUMAB
     Route: 042
     Dates: start: 20191121, end: 20200115

REACTIONS (17)
  - Pain in extremity [Not Recovered/Not Resolved]
  - Incision site impaired healing [Unknown]
  - Wrist fracture [Unknown]
  - Heart rate decreased [Unknown]
  - Weight decreased [Recovered/Resolved]
  - Blood pressure diastolic decreased [Unknown]
  - Lower limb fracture [Unknown]
  - Body temperature decreased [Unknown]
  - Blood pressure increased [Unknown]
  - Hypotension [Unknown]
  - Infusion related reaction [Unknown]
  - Blood pressure increased [Unknown]
  - Pain in extremity [Unknown]
  - Fall [Unknown]
  - Heart rate decreased [Unknown]
  - Blood pressure diastolic abnormal [Unknown]
  - Blood pressure systolic abnormal [Unknown]

NARRATIVE: CASE EVENT DATE: 20130927
